FAERS Safety Report 9262499 (Version 3)
Quarter: 2013Q3

REPORT INFORMATION
  Report Type: Spontaneous
  Country: US (occurrence: None)
  Receive Date: 20130429
  Receipt Date: 20130815
  Transmission Date: 20140515
  Serious: Yes (Death, Other)
  Sender: FDA-Public Use
  Company Number: ADR-2012-01856

PATIENT
  Sex: Female

DRUGS (2)
  1. BACLOFEN [Suspect]
     Indication: PAIN
  2. MORPHINE [Concomitant]

REACTIONS (20)
  - Yawning [None]
  - Rhinorrhoea [None]
  - Sneezing [None]
  - Chills [None]
  - Pain [None]
  - Pain of skin [None]
  - Confusional state [None]
  - Agitation [None]
  - Decreased appetite [None]
  - Hypophagia [None]
  - Drug withdrawal syndrome [None]
  - Device deployment issue [None]
  - Overdose [None]
  - Device malfunction [None]
  - Decreased appetite [None]
  - Confusional state [None]
  - Irritability [None]
  - Rhinorrhoea [None]
  - No therapeutic response [None]
  - Hepatic failure [None]
